FAERS Safety Report 7191406-9 (Version None)
Quarter: 2010Q4

REPORT INFORMATION
  Report Type: 
  Country: None (occurrence: None)
  Receive Date: 20101221
  Receipt Date: 20101221
  Transmission Date: 20110411
  Serious: No
  Sender: FDA-Public Use
  Company Number: None

PATIENT
  Age: 50 Year
  Sex: Female
  Weight: 56.6996 kg

DRUGS (3)
  1. HALFLYTELY [Suspect]
     Indication: BOWEL PREPARATION
     Dosage: 2 LITER TOTAL/8 OZ EVERY 15 MINUTES ORAL
     Route: 048
     Dates: start: 20100930
  2. HALFLYTELY [Suspect]
     Indication: COLONOSCOPY
     Dosage: 2 LITER TOTAL/8 OZ EVERY 15 MINUTES ORAL
     Route: 048
     Dates: start: 20100930
  3. BISACODYL [Suspect]
     Dosage: 5MG ONCE ORAL
     Route: 048

REACTIONS (6)
  - ABDOMINAL DISTENSION [None]
  - HEADACHE [None]
  - NAUSEA [None]
  - PRURITUS [None]
  - RHINORRHOEA [None]
  - URTICARIA [None]
